FAERS Safety Report 12511345 (Version 8)
Quarter: 2016Q3

REPORT INFORMATION
  Report Type: Report from Study
  Country: BE (occurrence: BE)
  Receive Date: 20160629
  Receipt Date: 20160923
  Transmission Date: 20161109
  Serious: Yes (Hospitalization, Other)
  Sender: FDA-Public Use
  Company Number: BE-ABBVIE-15P-013-1434310-00

PATIENT
  Sex: Female

DRUGS (16)
  1. REDOMEX [Concomitant]
     Active Substance: AMITRIPTYLINE HYDROCHLORIDE
     Indication: PRODUCT USED FOR UNKNOWN INDICATION
  2. ALDACTONE [Concomitant]
     Active Substance: SPIRONOLACTONE
     Indication: PRODUCT USED FOR UNKNOWN INDICATION
  3. RANITIDINE. [Concomitant]
     Active Substance: RANITIDINE
     Indication: PRODUCT USED FOR UNKNOWN INDICATION
  4. DUODOPA [Suspect]
     Active Substance: CARBIDOPA\LEVODOPA
     Dosage: AM = 4.3 ML, CD = 2.5 ML/H DURING 16H, ED = 1 ML
     Route: 050
     Dates: start: 20150818, end: 20160206
  5. DAFLON [Concomitant]
     Active Substance: DIOSMIN\HESPERIDIN
     Indication: PRODUCT USED FOR UNKNOWN INDICATION
  6. DUODOPA [Suspect]
     Active Substance: CARBIDOPA\LEVODOPA
     Dosage: AM=4.3ML; CD=3ML/H FOR 16HRS; ED=1ML
     Route: 050
     Dates: start: 20160206, end: 20160229
  7. DUODOPA [Suspect]
     Active Substance: CARBIDOPA\LEVODOPA
     Dosage: AM= 4 ML; CD= 2.7 ML/H DURING 16 HRS; ED= 1 ML
     Route: 050
     Dates: start: 20160922
  8. LIPITOR [Concomitant]
     Active Substance: ATORVASTATIN CALCIUM
     Indication: PRODUCT USED FOR UNKNOWN INDICATION
  9. DUODOPA [Suspect]
     Active Substance: CARBIDOPA\LEVODOPA
     Dosage: AM=4ML;CD=3.2 ML/H DURING 16 HRS;ED=1 ML
     Route: 050
     Dates: start: 20160630, end: 20160704
  10. PROLOPA [Concomitant]
     Active Substance: BENSERAZIDE\LEVODOPA
     Indication: PARKINSON^S DISEASE
     Dosage: FORM STRENGTH: 200MG/50MG; UNIT DOSE : 0.5 EMERGENCY MEDICATION: 3 IN 1 DAY
  11. DUODOPA [Suspect]
     Active Substance: CARBIDOPA\LEVODOPA
     Indication: PARKINSON^S DISEASE
     Dosage: AM = 4.3 ML, CD = 2.6 ML/H DURING 16H, ED = 1 ML
     Route: 050
     Dates: start: 20150629, end: 20150818
  12. DUODOPA [Suspect]
     Active Substance: CARBIDOPA\LEVODOPA
     Dosage: AM: 4ML; CD: 3.2ML/H FOR 16HRS; ED: 1ML
     Route: 050
     Dates: start: 20160704, end: 20160809
  13. DUODOPA [Suspect]
     Active Substance: CARBIDOPA\LEVODOPA
     Dosage: AM=4.3ML; CD= 3.5 ML/H DURING 16 HRS; ED=1 ML
     Route: 050
     Dates: start: 20160307, end: 20160630
  14. DUODOPA [Suspect]
     Active Substance: CARBIDOPA\LEVODOPA
     Dosage: AM: 4ML; CD: 2.9ML/H FOR 16HRS; ED: 1ML
     Route: 050
     Dates: start: 20160809, end: 20160922
  15. PROLOPA [Concomitant]
     Active Substance: BENSERAZIDE\LEVODOPA
     Dosage: FORM STRENGTH: 200MG/50MG; UNIT DOSE : 0.25 EMERGENCY MEDICATION: 3 IN 1 DAY
     Route: 048
  16. DUODOPA [Suspect]
     Active Substance: CARBIDOPA\LEVODOPA
     Dosage: AM: 4.3 ML;CD: 3.3 ML/H FOR 16 HRS.;ED: 1 ML
     Route: 050
     Dates: start: 20160229, end: 20160307

REACTIONS (21)
  - Drug ineffective [Unknown]
  - Freezing phenomenon [Not Recovered/Not Resolved]
  - Decreased appetite [Recovering/Resolving]
  - Vomiting [Unknown]
  - Weight decreased [Not Recovered/Not Resolved]
  - Gait disturbance [Recovering/Resolving]
  - Nocturia [Unknown]
  - Stoma site discharge [Unknown]
  - General physical health deterioration [Not Recovered/Not Resolved]
  - Asthenia [Unknown]
  - Stoma site hypergranulation [Recovered/Resolved]
  - Stoma site pain [Not Recovered/Not Resolved]
  - Stoma site erythema [Not Recovered/Not Resolved]
  - Device issue [Recovered/Resolved]
  - Stress [Unknown]
  - Apathy [Recovering/Resolving]
  - Device alarm issue [Recovered/Resolved]
  - Malignant melanoma [Recovering/Resolving]
  - Walking aid user [Unknown]
  - Depression [Unknown]
  - Dyskinesia [Not Recovered/Not Resolved]
